FAERS Safety Report 6386407-4 (Version None)
Quarter: 2009Q3

REPORT INFORMATION
  Report Type: 
  Country: None (occurrence: None)
  Receive Date: 20090930
  Receipt Date: 20090930
  Transmission Date: 20100115
  Serious: Yes (Disabling)
  Sender: FDA-Public Use
  Company Number: None

PATIENT
  Age: 2 Year
  Sex: Male
  Weight: 11.7935 kg

DRUGS (1)
  1. ADENOCARD [Suspect]
     Indication: TACHYCARDIA
     Dosage: 6MG/2ML IV
     Route: 042
     Dates: start: 20090928, end: 20090928

REACTIONS (3)
  - DRUG DELIVERY SYSTEM MALFUNCTION [None]
  - DRUG DOSE OMISSION [None]
  - MEDICAL DEVICE COMPLICATION [None]
